FAERS Safety Report 14555504 (Version 1)
Quarter: 2018Q1

REPORT INFORMATION
  Report Type: Spontaneous
  Country: CN (occurrence: CN)
  Receive Date: 20180220
  Receipt Date: 20180220
  Transmission Date: 20180509
  Serious: Yes (Hospitalization)
  Sender: FDA-Public Use
  Company Number: CN-BRISTOL-MYERS SQUIBB COMPANY-BMS-2018-014660

PATIENT
  Age: 73 Year
  Sex: Female
  Weight: 57 kg

DRUGS (4)
  1. METFORMIN HYDROCHLORIDE. [Suspect]
     Active Substance: METFORMIN HYDROCHLORIDE
     Indication: DIABETES MELLITUS
     Dosage: 0.5 G, BID
     Route: 048
     Dates: start: 20171013
  2. METHOXYPHENAMINE [Concomitant]
     Active Substance: METHOXYPHENAMINE
     Indication: LOWER RESPIRATORY TRACT INFECTION
     Dosage: 2 DF, TID; 2 DF = 2 PELLETS
     Route: 048
     Dates: start: 20171013, end: 20171031
  3. MOSAPRIDE CITRATE [Concomitant]
     Active Substance: MOSAPRIDE CITRATE
     Indication: GASTRIC DISORDER
     Dosage: 5 MG, TID
     Route: 065
     Dates: start: 20171013, end: 20171020
  4. LORATADINE. [Concomitant]
     Active Substance: LORATADINE
     Indication: LOWER RESPIRATORY TRACT INFECTION
     Dosage: 7 DAYS
     Route: 048

REACTIONS (5)
  - Asthenia [Recovering/Resolving]
  - Vomiting [Recovering/Resolving]
  - Chronic gastritis [Unknown]
  - Decreased appetite [Recovering/Resolving]
  - Pallor [Recovering/Resolving]

NARRATIVE: CASE EVENT DATE: 20171025
